FAERS Safety Report 7540827-0 (Version None)
Quarter: 2011Q2

REPORT INFORMATION
  Report Type: 
  Country: None (occurrence: None)
  Receive Date: 20110610
  Receipt Date: 20110527
  Transmission Date: 20111010
  Serious: Yes (Hospitalization, Other)
  Sender: FDA-Public Use
  Company Number: US-JNJFOC-20110310363

PATIENT
  Sex: Female
  Weight: 67.13 kg

DRUGS (3)
  1. SIMPONI [Suspect]
     Indication: RHEUMATOID ARTHRITIS
     Route: 058
     Dates: start: 20101006, end: 20110301
  2. FOLIC ACID [Concomitant]
  3. METHOTREXATE [Concomitant]
     Indication: RHEUMATOID ARTHRITIS
     Dates: start: 20101006

REACTIONS (3)
  - PLATELET COUNT DECREASED [None]
  - VASCULITIC RASH [None]
  - SYSTEMIC LUPUS ERYTHEMATOSUS [None]
